FAERS Safety Report 8954111 (Version 4)
Quarter: 2013Q1

REPORT INFORMATION
  Report Type: Report from Study
  Country: US (occurrence: US)
  Receive Date: 20121207
  Receipt Date: 20130305
  Transmission Date: 20140127
  Serious: Yes (Hospitalization)
  Sender: FDA-Public Use
  Company Number: US-JNJFOC-20121202056

PATIENT
  Age: 7 Year
  Sex: Female
  Weight: 23.4 kg

DRUGS (2)
  1. REMICADE [Suspect]
     Indication: COLITIS ULCERATIVE
     Route: 042
     Dates: start: 20111004
  2. HUMIRA [Concomitant]
     Dates: start: 20120420

REACTIONS (1)
  - Colitis ulcerative [Recovered/Resolved]
